FAERS Safety Report 5083320-X (Version None)
Quarter: 2006Q3

REPORT INFORMATION
  Report Type: 
  Country: None (occurrence: None)
  Receive Date: 20060816
  Receipt Date: 20060811
  Transmission Date: 20061208
  Serious: Yes (Other)
  Sender: FDA-Public Use
  Company Number: TPA2006A00046

PATIENT
  Age: 67 Year
  Sex: Female
  Weight: 58.9676 kg

DRUGS (7)
  1. ACTOS [Suspect]
     Indication: DIABETES MELLITUS NON-INSULIN-DEPENDENT
     Dosage: 45 MG, 1 IN 1 D, PER ORAL
     Route: 048
     Dates: start: 20010101
  2. LIPITOR (ATORVASTATIN) (10 MILLIGRAM) [Concomitant]
  3. LOPID (GEMFIBROZIL) (60 MILLIGRAM) [Concomitant]
  4. ACCUPRIL (QUINAPRIL HYDROCHLORIDE) (20 MILLIGRAM) [Concomitant]
  5. DIGOXIN (DIGOXIN) (0.025 MILLIGRAM) [Concomitant]
  6. VITAMIN A PALMITATE (RETINOL) [Concomitant]
  7. CALCIUM WITH VITAMIN D [Concomitant]

REACTIONS (6)
  - BLINDNESS UNILATERAL [None]
  - CATARACT [None]
  - EYE OEDEMA [None]
  - RETINAL DETACHMENT [None]
  - VISION BLURRED [None]
  - VISUAL ACUITY REDUCED [None]
